FAERS Safety Report 8049089-1 (Version None)
Quarter: 2012Q1

REPORT INFORMATION
  Report Type: 
  Country: None (occurrence: None)
  Receive Date: 20120117
  Receipt Date: 20120112
  Transmission Date: 20120608
  Serious: Yes (Death, Other)
  Sender: FDA-Public Use
  Company Number: HU-PFIZER INC-2012003341

PATIENT
  Sex: Male

DRUGS (3)
  1. METHYLPREDNISOLONE [Suspect]
     Indication: IMMUNOSUPPRESSION
  2. CIPROFLOXACIN HCL [Suspect]
     Indication: ANTIBIOTIC PROPHYLAXIS
  3. FLUCONAZOLE [Suspect]
     Indication: ANTIBIOTIC PROPHYLAXIS

REACTIONS (3)
  - SEPSIS [None]
  - CYTOMEGALOVIRUS INFECTION [None]
  - ASPERGILLOSIS [None]
